FAERS Safety Report 12739065 (Version 2)
Quarter: 2016Q4

REPORT INFORMATION
  Report Type: Spontaneous
  Country: US (occurrence: US)
  Receive Date: 20160913
  Receipt Date: 20161108
  Transmission Date: 20170207
  Serious: Yes (Other)
  Sender: FDA-Public Use
  Company Number: US-PFIZER INC-2016425419

PATIENT
  Age: 61 Year
  Sex: Female
  Weight: 54.43 kg

DRUGS (4)
  1. DUAVEE [Suspect]
     Active Substance: BAZEDOXIFENE ACETATE\ESTROGENS, CONJUGATED
     Indication: HORMONE REPLACEMENT THERAPY
     Dosage: 1 DF (20 MG/ 0.45 MG), 1X/DAY
     Route: 048
     Dates: start: 20160829
  2. ARMOUR THYROID [Concomitant]
     Active Substance: THYROID, PORCINE
     Indication: THYROID DISORDER
     Dosage: 60 MG, 1X/DAY
  3. PROPRANOLOL [Concomitant]
     Active Substance: PROPRANOLOL\PROPRANOLOL HYDROCHLORIDE
     Indication: ANXIETY
     Dosage: 10 MG, AS NEEDED (ONCE A DAY)
  4. DUAVEE [Suspect]
     Active Substance: BAZEDOXIFENE ACETATE\ESTROGENS, CONJUGATED
     Indication: MENOPAUSAL SYMPTOMS

REACTIONS (5)
  - Visual impairment [Unknown]
  - Vision blurred [Unknown]
  - Head discomfort [Unknown]
  - Diplopia [Unknown]
  - Vaginal haemorrhage [Not Recovered/Not Resolved]

NARRATIVE: CASE EVENT DATE: 20160907
